FAERS Safety Report 18173199 (Version 5)
Quarter: 2021Q4

REPORT INFORMATION
  Report Type: Spontaneous
  Country: NL (occurrence: NL)
  Receive Date: 20200820
  Receipt Date: 20211216
  Transmission Date: 20220304
  Serious: Yes (Other)
  Sender: FDA-Public Use
  Company Number: NL-ABBVIE-19S-114-2656497-00

PATIENT
  Age: 67 Year
  Sex: Male
  Weight: 80 kg

DRUGS (14)
  1. CLOZAPINE [Suspect]
     Active Substance: CLOZAPINE
     Indication: Parkinson^s disease
     Dosage: 2, ONCE A DAY (DOSE INCREASED FROM 0.5)
     Route: 065
  2. CLOZAPINE [Suspect]
     Active Substance: CLOZAPINE
     Dosage: 25 MILLIGRAM, ONCE A DAY, DOSE INCREASED TO 0.4, AT 8AM, 12PM, 4PM AND 8PM
     Route: 065
  3. CARBIDOPA\LEVODOPA [Suspect]
     Active Substance: CARBIDOPA\LEVODOPA
     Indication: Parkinson^s disease
     Dosage: MORNING DOSE 15 ML; CONTINUOUS DOSE 5.8 ML / HOUR; EXTRA DOSE 4.0 ML
     Route: 065
  4. CARBIDOPA\LEVODOPA [Suspect]
     Active Substance: CARBIDOPA\LEVODOPA
     Dosage: MD: 15, CD: 6.0, ED: 4.0, 16 HR ADMINISTRATION, -2-3 EXTRA DOSES DAILY WITH GOOD EFFECT
     Route: 065
     Dates: start: 20170925
  5. CARBIDOPA\LEVODOPA [Suspect]
     Active Substance: CARBIDOPA\LEVODOPA
     Dosage: MORNING DOSE: 15.0 CONTINUOUS DOSE: 6.0 EXTRA DOSE: 4.0 (HCP: DOSE 5.8)
     Route: 065
  6. CARBIDOPA\LEVODOPA [Suspect]
     Active Substance: CARBIDOPA\LEVODOPA
     Dosage: CD: 5.5ML/H
     Route: 065
     Dates: start: 20170925
  7. CARBIDOPA\LEVODOPA [Suspect]
     Active Substance: CARBIDOPA\LEVODOPA
     Dosage: UNK (MD: 15.0 ML CD: 5.3 ML/H ED: 4.0 ML)
     Route: 065
  8. CARBIDOPA\LEVODOPA [Suspect]
     Active Substance: CARBIDOPA\LEVODOPA
     Dosage: UNK (MD: 15.0 ML CD: 5.0 ML/H ED: 4.0 ML)
     Route: 065
  9. CARBIDOPA\LEVODOPA [Suspect]
     Active Substance: CARBIDOPA\LEVODOPA
     Dosage: MORNING DOSE 15 ML; CONTINUOUS DOSE 5.8 ML / HOUR; EXTRA DOSE 4.0 ML
     Route: 065
  10. CARBIDOPA\LEVODOPA [Suspect]
     Active Substance: CARBIDOPA\LEVODOPA
     Dosage: MD: 15, CD: 6.0, ED: 4.0, 16 HR ADMINISTRATION, -2-3 EXTRA DOSES DAILY WITH GOOD EFFECT
     Route: 065
     Dates: start: 20170925
  11. CARBIDOPA\LEVODOPA [Suspect]
     Active Substance: CARBIDOPA\LEVODOPA
     Dosage: UNK (MD: 15.0 ML CD: 5.0 ML/H ED: 4.0 ML)
     Route: 065
  12. CARBIDOPA\LEVODOPA [Suspect]
     Active Substance: CARBIDOPA\LEVODOPA
     Dosage: MORNING DOSE: 15.0 CONTINUOUS DOSE: 6.0 EXTRA DOSE: 4.0 (HCP: DOSE 5.8)
     Route: 065
  13. BENSERAZIDE HYDROCHLORIDE\LEVODOPA [Concomitant]
     Active Substance: BENSERAZIDE HYDROCHLORIDE\LEVODOPA
     Indication: Product used for unknown indication
     Dosage: UNK (2 TIMES, DISPERSIBLE)
     Route: 065
  14. RIVASTIGMINE [Concomitant]
     Active Substance: RIVASTIGMINE
     Indication: Parkinson^s disease
     Dosage: 1 DOSAGE FORM, ONCE A DAY
     Route: 065

REACTIONS (31)
  - Dementia [Not Recovered/Not Resolved]
  - Hallucination, visual [Not Recovered/Not Resolved]
  - Hallucination [Not Recovered/Not Resolved]
  - Wound infection helminthic [Recovered/Resolved]
  - Stoma site infection [Not Recovered/Not Resolved]
  - Learning disorder [Not Recovered/Not Resolved]
  - Fibroma [Recovered/Resolved]
  - Dyschezia [Not Recovered/Not Resolved]
  - Urinary incontinence [Not Recovered/Not Resolved]
  - Anxiety [Unknown]
  - Visual impairment [Recovered/Resolved]
  - Dyskinesia [Not Recovered/Not Resolved]
  - Muscle rigidity [Not Recovered/Not Resolved]
  - Cognitive disorder [Not Recovered/Not Resolved]
  - Stoma site discharge [Not Recovered/Not Resolved]
  - Freezing phenomenon [Not Recovered/Not Resolved]
  - Anal incontinence [Not Recovered/Not Resolved]
  - Fall [Not Recovered/Not Resolved]
  - Asthenia [Not Recovered/Not Resolved]
  - Decreased appetite [Recovered/Resolved]
  - Stoma site extravasation [Not Recovered/Not Resolved]
  - Stoma site hypergranulation [Not Recovered/Not Resolved]
  - Disturbance in attention [Not Recovered/Not Resolved]
  - Weight decreased [Recovered/Resolved]
  - Somnolence [Not Recovered/Not Resolved]
  - Therapeutic product effect incomplete [Not Recovered/Not Resolved]
  - On and off phenomenon [Recovered/Resolved]
  - Device breakage [Unknown]
  - Fatigue [Not Recovered/Not Resolved]
  - Stoma site reaction [Not Recovered/Not Resolved]
  - Stoma site erythema [Not Recovered/Not Resolved]

NARRATIVE: CASE EVENT DATE: 20200101
